FAERS Safety Report 12460266 (Version 3)
Quarter: 2016Q2

REPORT INFORMATION
  Report Type: Report from Study
  Country: MX (occurrence: MX)
  Receive Date: 20160613
  Receipt Date: 20160628
  Transmission Date: 20160815
  Serious: Yes (Hospitalization)
  Sender: FDA-Public Use
  Company Number: MX-EMD SERONO-8088106

PATIENT
  Age: 11 Year
  Sex: Female

DRUGS (2)
  1. SAIZEN [Suspect]
     Active Substance: SOMATROPIN
     Indication: PRODUCT USED FOR UNKNOWN INDICATION
     Dates: start: 20150227, end: 20150326
  2. SAIZEN [Suspect]
     Active Substance: SOMATROPIN
     Dates: start: 20160602

REACTIONS (2)
  - Type 1 diabetes mellitus [Unknown]
  - Dehydration [Unknown]

NARRATIVE: CASE EVENT DATE: 20150326
